FAERS Safety Report 7092702-6 (Version None)
Quarter: 2010Q4

REPORT INFORMATION
  Report Type: 
  Country: None (occurrence: None)
  Receive Date: 20101110
  Receipt Date: 20091207
  Transmission Date: 20110411
  Serious: No
  Sender: FDA-Public Use
  Company Number: US-PFIZER INC-2009307642

PATIENT
  Sex: Male
  Weight: 95.238 kg

DRUGS (2)
  1. ANSAID [Suspect]
     Indication: INFLAMMATION
     Dosage: 100 MG, 2X/DAY
     Route: 048
     Dates: start: 19910101
  2. SYNTHROID [Concomitant]

REACTIONS (5)
  - ABDOMINAL DISCOMFORT [None]
  - ASTHENIA [None]
  - DISCOMFORT [None]
  - INTESTINAL FUNCTIONAL DISORDER [None]
  - MUSCLE SPASMS [None]
